FAERS Safety Report 13264701 (Version 2)
Quarter: 2017Q1

REPORT INFORMATION
  Report Type: Spontaneous
  Country: JP (occurrence: JP)
  Receive Date: 20170223
  Receipt Date: 20170309
  Transmission Date: 20170428
  Serious: Yes (Hospitalization, Other)
  Sender: FDA-Public Use
  Company Number: US-ASTRAZENECA-2017SE19913

PATIENT
  Age: 334 Day
  Sex: Male

DRUGS (1)
  1. SYNAGIS [Suspect]
     Active Substance: PALIVIZUMAB
     Indication: PRODUCT USED FOR UNKNOWN INDICATION
     Route: 030
     Dates: start: 201609

REACTIONS (4)
  - Fall [Recovering/Resolving]
  - Head injury [Unknown]
  - Subdural haematoma [Unknown]
  - Seizure [Unknown]

NARRATIVE: CASE EVENT DATE: 20170126
